FAERS Safety Report 26161031 (Version 1)
Quarter: 2025Q4

REPORT INFORMATION
  Report Type: Spontaneous
  Country: US (occurrence: US)
  Receive Date: 20251216
  Receipt Date: 20251216
  Transmission Date: 20260117
  Serious: No
  Sender: ALCON
  Company Number: US-ALCON LABORATORIES-ALC2025US006609

PATIENT
  Age: 64 Year
  Sex: Female

DRUGS (2)
  1. ACOLTREMON [Suspect]
     Active Substance: ACOLTREMON
     Indication: Dry eye
     Dosage: 1 DRP, BID
     Route: 047
     Dates: start: 20251014, end: 20251106
  2. ACOLTREMON [Suspect]
     Active Substance: ACOLTREMON
     Indication: Meibomian gland dysfunction

REACTIONS (1)
  - Eye irritation [Unknown]
